FAERS Safety Report 14737949 (Version 3)
Quarter: 2018Q2

REPORT INFORMATION
  Report Type: Report from Study
  Country: US (occurrence: US)
  Receive Date: 20180409
  Receipt Date: 20180628
  Transmission Date: 20180711
  Serious: No
  Sender: FDA-Public Use
  Company Number: US-ALEXION PHARMACEUTICALS INC.-A201804104

PATIENT
  Age: 21 Year
  Sex: Female

DRUGS (1)
  1. STRENSIQ [Suspect]
     Active Substance: ASFOTASE ALFA
     Indication: HYPOPHOSPHATASIA
     Dosage: UNK
     Route: 065

REACTIONS (4)
  - Subcutaneous abscess [Unknown]
  - Rash maculo-papular [Unknown]
  - Skin lesion [Not Recovered/Not Resolved]
  - Treatment noncompliance [Recovered/Resolved]
